FAERS Safety Report 23921239 (Version 1)
Quarter: 2024Q2

REPORT INFORMATION
  Report Type: Spontaneous
  Country: US (occurrence: None)
  Receive Date: 20240529
  Receipt Date: 20240529
  Transmission Date: 20240716
  Serious: Yes (Hospitalization)
  Sender: FDA-Public Use
  Company Number: None

PATIENT
  Age: 66 Year
  Sex: Male
  Weight: 96.9 kg

DRUGS (1)
  1. RUXIENCE [Suspect]
     Active Substance: RITUXIMAB-PVVR
     Indication: Lymphoma
     Route: 042
     Dates: start: 20240416, end: 20240416

REACTIONS (10)
  - Infusion related reaction [None]
  - Nausea [None]
  - Vomiting [None]
  - Chest discomfort [None]
  - Dyspnoea [None]
  - Hypotension [None]
  - Product administration interrupted [None]
  - Drug intolerance [None]
  - Acute kidney injury [None]
  - Liver function test abnormal [None]

NARRATIVE: CASE EVENT DATE: 20240416
